FAERS Safety Report 5346907-2 (Version None)
Quarter: 2007Q2

REPORT INFORMATION
  Report Type: 
  Country: None (occurrence: None)
  Receive Date: 20070501
  Receipt Date: 20060405
  Transmission Date: 20071010
  Serious: Yes (Other)
  Sender: FDA-Public Use
  Company Number: T200600164

PATIENT
  Age: 51 Year
  Sex: Male

DRUGS (2)
  1. RESTORIL [Suspect]
     Indication: SLEEP DISORDER
     Dosage: 1 CAP AT BEDTIME, ORAL
     Route: 048
     Dates: start: 20060101, end: 20060101
  2. MIRALAX [Concomitant]

REACTIONS (1)
  - AMNESIA [None]
